FAERS Safety Report 5612341-0 (Version None)
Quarter: 2008Q1

REPORT INFORMATION
  Report Type: 
  Country: None (occurrence: None)
  Receive Date: 20080129
  Receipt Date: 20080115
  Transmission Date: 20080703
  Serious: Yes (Other)
  Sender: FDA-Public Use
  Company Number: CHNY2008GB00634

PATIENT
  Age: 77 Year
  Sex: Male

DRUGS (4)
  1. OTRIVIN [Suspect]
     Indication: NASAL CONGESTION
     Dosage: 2 SPRAY IN EACH NOSTRIL 3 TIMES A DAY, NASAL; 1 SPRAY IN EACH NOSTRIL AT NIGHT, NASAL
     Route: 045
     Dates: start: 20040101
  2. GLUCOSAMINE                   (GLUCOSAMINE) [Concomitant]
  3. COD LIVER OIL FORTIFIED TAB [Concomitant]
  4. ASPIRIN [Concomitant]

REACTIONS (4)
  - DISEASE RECURRENCE [None]
  - DRY MOUTH [None]
  - INCORRECT DRUG ADMINISTRATION DURATION [None]
  - SNORING [None]
